FAERS Safety Report 6649026-8 (Version None)
Quarter: 2010Q1

REPORT INFORMATION
  Report Type: 
  Country: None (occurrence: None)
  Receive Date: 20100324
  Receipt Date: 20100317
  Transmission Date: 20100710
  Serious: Yes (Other)
  Sender: FDA-Public Use
  Company Number: JP-GENENTECH-299346

PATIENT
  Age: 52 Year
  Sex: Male

DRUGS (3)
  1. RITUXAN [Suspect]
     Indication: LIVER TRANSPLANT
     Dosage: 500 MG, SINGLE
     Route: 065
  2. CALCINEURIN INHIBITORS NOS [Concomitant]
     Indication: LIVER TRANSPLANT
  3. MYCOPHENOLATE MOFETIL [Concomitant]
     Indication: LIVER TRANSPLANT

REACTIONS (1)
  - SPONDYLITIS [None]
